FAERS Safety Report 15781604 (Version 5)
Quarter: 2019Q4

REPORT INFORMATION
  Report Type: Spontaneous
  Country: US (occurrence: US)
  Receive Date: 20190102
  Receipt Date: 20191114
  Transmission Date: 20200122
  Serious: Yes (Other)
  Sender: FDA-Public Use
  Company Number: US-PFIZER INC-2018528183

PATIENT
  Age: 37 Year
  Sex: Female
  Weight: 54.42 kg

DRUGS (3)
  1. DILANTIN [Suspect]
     Active Substance: PHENYTOIN
     Indication: SEIZURE
     Dosage: 100 MG, 2X/DAY
     Route: 048
  2. DILANTIN [Suspect]
     Active Substance: PHENYTOIN
     Dosage: 300 MG, DAILY (2 CAPSULES TAKEN BY MOUTH IN THE MORNING, 1 CAPSULE TAKEN BY MOUTH AT NIGHT)
     Route: 048
  3. DILANTIN [Suspect]
     Active Substance: PHENYTOIN
     Indication: EPILEPSY
     Dosage: 100 MG, 3X/DAY
     Route: 048
     Dates: start: 1995

REACTIONS (6)
  - Generalised tonic-clonic seizure [Unknown]
  - Loose tooth [Not Recovered/Not Resolved]
  - Teeth brittle [Not Recovered/Not Resolved]
  - Blood calcium abnormal [Not Recovered/Not Resolved]
  - Off label use [Unknown]
  - Gingival disorder [Not Recovered/Not Resolved]

NARRATIVE: CASE EVENT DATE: 2010
